FAERS Safety Report 25420831 (Version 1)
Quarter: 2025Q2

REPORT INFORMATION
  Report Type: Spontaneous
  Country: CA (occurrence: CA)
  Receive Date: 20250611
  Receipt Date: 20250611
  Transmission Date: 20250716
  Serious: Yes (Life-Threatening, Hospitalization, Other)
  Sender: GALDERMA
  Company Number: CA-GALDERMA-CA2025009552

PATIENT

DRUGS (13)
  1. DOXYCYCLINE [Suspect]
     Active Substance: DOXYCYCLINE
     Indication: Pleural effusion
  2. BLEOMYCIN [Concomitant]
     Active Substance: BLEOMYCIN SULFATE
     Indication: Pleural effusion
  3. INTERFERON [Concomitant]
     Active Substance: INTERFERON
     Indication: Lymphangioma
  4. OCTREOTIDE [Concomitant]
     Active Substance: OCTREOTIDE
     Indication: Pleural effusion
  5. PREDNISONE [Concomitant]
     Active Substance: PREDNISONE
     Indication: Lymphangioma
  6. PREDNISONE [Concomitant]
     Active Substance: PREDNISONE
  7. PROPRANOLOL [Concomitant]
     Active Substance: PROPRANOLOL HYDROCHLORIDE
     Indication: Lymphangioma
  8. SIROLIMUS [Concomitant]
     Active Substance: SIROLIMUS
     Indication: Lymphangioma
  9. SIROLIMUS [Concomitant]
     Active Substance: SIROLIMUS
  10. SIROLIMUS [Concomitant]
     Active Substance: SIROLIMUS
  11. SIROLIMUS [Concomitant]
     Active Substance: SIROLIMUS
  12. TRAMETINIB [Concomitant]
     Active Substance: TRAMETINIB
     Indication: Lymphangioma
  13. VINCRISTINE [Concomitant]
     Active Substance: VINCRISTINE
     Indication: Lymphangioma
     Dosage: 0.05 MILLIGRAM/KILOGRAM, QWK, 1 EVERY 1 WEEKS, INTRAVENOUS USE

REACTIONS (16)
  - Adrenal suppression [Recovered/Resolved]
  - Cataract subcapsular [Recovered/Resolved]
  - Cushingoid [Recovered/Resolved]
  - Cytomegalovirus infection [Recovered/Resolved]
  - Glomerulosclerosis [Recovered/Resolved]
  - Hypertension [Recovered/Resolved]
  - Infection [Recovered/Resolved]
  - Neuropathy peripheral [Recovered/Resolved]
  - Osteoporosis [Recovered/Resolved]
  - Proteinuria [Recovered/Resolved]
  - Pulmonary toxicity [Recovered/Resolved]
  - Renal disorder [Recovered/Resolved]
  - Drug ineffective for unapproved indication [Recovered/Resolved]
  - Product use in unapproved indication [Recovered/Resolved]
  - Product administered to patient of inappropriate age [Recovered/Resolved]
  - Product prescribing error [Recovered/Resolved]
